FAERS Safety Report 7042124-9 (Version None)
Quarter: 2010Q4

REPORT INFORMATION
  Report Type: 
  Country: None (occurrence: None)
  Receive Date: 20101013
  Receipt Date: 20091216
  Transmission Date: 20110411
  Serious: No
  Sender: FDA-Public Use
  Company Number: US-ASTRAZENECA-2009SE32372

PATIENT
  Age: 66 Year
  Sex: Male

DRUGS (6)
  1. SYMBICORT [Suspect]
     Indication: CHRONIC OBSTRUCTIVE PULMONARY DISEASE
     Dosage: 160/4.5 TWO PUFFS
     Route: 055
     Dates: start: 20090920
  2. BENECAR [Concomitant]
  3. SINGULAIR [Concomitant]
  4. BRIMONIDINE [Concomitant]
  5. LUMIGAN [Concomitant]
  6. ALBUTEROL [Concomitant]

REACTIONS (1)
  - RASH GENERALISED [None]
